FAERS Safety Report 5411779-4 (Version None)
Quarter: 2007Q3

REPORT INFORMATION
  Report Type: 
  Country: None (occurrence: None)
  Receive Date: 20070813
  Receipt Date: 20070731
  Transmission Date: 20080115
  Serious: Yes (Hospitalization, Other)
  Sender: FDA-Public Use
  Company Number: PHMT2007CA00923

PATIENT
  Age: 67 Year
  Sex: Male

DRUGS (1)
  1. SANDOSTATIN LAR [Suspect]
     Indication: CARCINOID TUMOUR
     Dosage: 30MG EVERY 4 WEEKS
     Route: 030
     Dates: start: 20050923, end: 20070523

REACTIONS (16)
  - ABDOMINAL PAIN [None]
  - CARDIAC DISORDER [None]
  - COLOSTOMY [None]
  - DELIRIUM [None]
  - INTESTINAL ANASTOMOSIS [None]
  - INTUBATION [None]
  - MALIGNANT NEOPLASM PROGRESSION [None]
  - MALIGNANT TUMOUR EXCISION [None]
  - OBSTRUCTION [None]
  - PERITONITIS [None]
  - POISONING [None]
  - POLYPECTOMY [None]
  - POST PROCEDURAL COMPLICATION [None]
  - RESPIRATORY DISORDER [None]
  - SLEEP APNOEA SYNDROME [None]
  - SUTURE RUPTURE [None]
